FAERS Safety Report 7065160-5 (Version None)
Quarter: 2010Q4

REPORT INFORMATION
  Report Type: 
  Country: None (occurrence: None)
  Receive Date: 20101027
  Receipt Date: 19941117
  Transmission Date: 20110411
  Serious: Yes (Death)
  Sender: FDA-Public Use
  Company Number: DE-ROCHE-940321114001

PATIENT
  Age: 22 Year
  Sex: Male

DRUGS (2)
  1. ROFERON-A [Suspect]
     Route: 065
  2. PROLEUKIN [Concomitant]
     Route: 065

REACTIONS (2)
  - MALIGNANT NEOPLASM PROGRESSION [None]
  - SKIN DEPIGMENTATION [None]
